FAERS Safety Report 6980755-2 (Version None)
Quarter: 2010Q3

REPORT INFORMATION
  Report Type: 
  Country: None (occurrence: None)
  Receive Date: 20100914
  Receipt Date: 20100902
  Transmission Date: 20110219
  Serious: Yes (Hospitalization)
  Sender: FDA-Public Use
  Company Number: TR-WATSON-2010-12054

PATIENT
  Age: 43 Year
  Sex: Male

DRUGS (3)
  1. ETOPOSIDE (WATSON LABORATORIES) [Suspect]
     Indication: TESTIS CANCER
     Dosage: 100 MG/M2
     Route: 042
  2. CISPLATIN [Suspect]
     Indication: TESTIS CANCER
     Dosage: 20 MG/M2
     Route: 042
  3. BLEOMYCIN SULFATE [Suspect]
     Indication: TESTIS CANCER
     Dosage: 30 MG
     Route: 042

REACTIONS (1)
  - CORONARY ARTERY THROMBOSIS [None]
